FAERS Safety Report 5260862-5 (Version None)
Quarter: 2007Q1

REPORT INFORMATION
  Report Type: 
  Country: None (occurrence: None)
  Receive Date: 20070309
  Receipt Date: 20070226
  Transmission Date: 20070707
  Serious: Yes (Other)
  Sender: FDA-Public Use
  Company Number: GB-ROCHE-479159

PATIENT
  Age: 19 Year
  Sex: Female

DRUGS (3)
  1. ROACCUTANE [Suspect]
     Indication: ACNE
     Route: 048
     Dates: start: 20070109, end: 20070112
  2. ROACCUTANE [Suspect]
     Route: 048
  3. DIANETTE [Concomitant]
     Indication: ACNE
     Route: 048
     Dates: start: 20060801

REACTIONS (1)
  - DEAFNESS UNILATERAL [None]
